FAERS Safety Report 17076605 (Version 1)
Quarter: 2019Q4

REPORT INFORMATION
  Report Type: Spontaneous
  Country: US (occurrence: US)
  Receive Date: 20191126
  Receipt Date: 20191126
  Transmission Date: 20200122
  Serious: No
  Sender: FDA-Public Use
  Company Number: US-SA-2019SA326391

PATIENT
  Sex: Female

DRUGS (1)
  1. DUPIXENT [Suspect]
     Active Substance: DUPILUMAB
     Dosage: UNK
     Dates: start: 20191112, end: 20191112

REACTIONS (7)
  - Malaise [Unknown]
  - Myalgia [Unknown]
  - Dyspnoea [Unknown]
  - Asthma [Unknown]
  - Cough [Unknown]
  - Wheezing [Unknown]
  - Fatigue [Unknown]

NARRATIVE: CASE EVENT DATE: 20191113
